FAERS Safety Report 8305800-3 (Version None)
Quarter: 2012Q2

REPORT INFORMATION
  Report Type: 
  Country: None (occurrence: None)
  Receive Date: 20120423
  Receipt Date: 20120413
  Transmission Date: 20120825
  Serious: No
  Sender: FDA-Public Use
  Company Number: ES-FRI-1000029938

PATIENT
  Age: 81 Year
  Sex: Male

DRUGS (6)
  1. ROFLUMILAST [Suspect]
     Indication: CHRONIC OBSTRUCTIVE PULMONARY DISEASE
     Dosage: 500 MCG
     Route: 048
     Dates: start: 20110725
  2. SPIRIVA [Concomitant]
     Dates: start: 20040916
  3. OMEPRAZOLE [Suspect]
     Route: 048
     Dates: start: 20040916
  4. VENTOLIN [Concomitant]
     Dates: start: 20080425
  5. AMITRIPTYLINE HCL [Suspect]
     Dates: start: 20111007
  6. PLUSVENT [Concomitant]
     Dosage: 50 MCG/250 MCG
     Dates: start: 20040416

REACTIONS (2)
  - GYNAECOMASTIA [None]
  - DERMATITIS [None]
